FAERS Safety Report 4762170-5 (Version None)
Quarter: 2005Q3

REPORT INFORMATION
  Report Type: 
  Country: None (occurrence: None)
  Receive Date: 20050906
  Receipt Date: 20050906
  Transmission Date: 20060218
  Serious: Yes (Life-Threatening, Hospitalization)
  Sender: FDA-Public Use
  Company Number: None

PATIENT
  Age: 62 Year
  Sex: Male
  Weight: 136.9863 kg

DRUGS (6)
  1. GEMCITABINE   1000MG [Suspect]
     Indication: BLADDER CANCER
     Dosage: IV
     Route: 042
  2. GEMCITABINE   1000MG [Suspect]
     Indication: RENAL CELL CARCINOMA STAGE UNSPECIFIED
     Dosage: IV
     Route: 042
  3. CARBOPLATIN [Concomitant]
  4. FUROSEMIDE [Concomitant]
  5. POTASSIUM [Concomitant]
  6. LEVOTHYROXINE [Concomitant]

REACTIONS (3)
  - FLUID OVERLOAD [None]
  - HAEMOLYTIC URAEMIC SYNDROME [None]
  - RENAL FAILURE ACUTE [None]
